FAERS Safety Report 22592990 (Version 1)
Quarter: 2023Q2

REPORT INFORMATION
  Report Type: Spontaneous
  Country: US (occurrence: US)
  Receive Date: 20230613
  Receipt Date: 20230613
  Transmission Date: 20230722
  Serious: Yes (Other)
  Sender: FDA-Public Use
  Company Number: US-SA-POMP-10762

PATIENT
  Age: 16 Year
  Sex: Male

DRUGS (5)
  1. ALGLUCOSIDASE ALFA [Suspect]
     Active Substance: ALGLUCOSIDASE ALFA
     Indication: Glycogen storage disease type II
     Dosage: 20 MG/KG, QOW
     Route: 042
     Dates: start: 20060621
  2. PINDOLOL [Concomitant]
     Active Substance: PINDOLOL
     Dosage: 5 MG, BID
     Route: 048
     Dates: start: 20060619
  3. ENALAPRIL [Concomitant]
     Active Substance: ENALAPRIL
     Dosage: UNK
     Dates: start: 20060619
  4. ENALAPRIL [Concomitant]
     Active Substance: ENALAPRIL
     Dosage: 2.5 MG, BID
  5. ALDACTONE [Concomitant]
     Active Substance: SPIRONOLACTONE
     Dosage: 25 MG, QD
     Route: 048

REACTIONS (17)
  - Syncope [Recovered/Resolved]
  - Hyperhidrosis [Unknown]
  - Heart rate increased [Unknown]
  - Loss of consciousness [Unknown]
  - Syncope [Unknown]
  - Mitral valve thickening [Unknown]
  - Ventricular hypokinesia [Unknown]
  - Left ventricular dilatation [Unknown]
  - Mitral valve prolapse [Unknown]
  - Blood creatine phosphokinase increased [Unknown]
  - Orthostatic hypotension [Unknown]
  - Aortic dilatation [Unknown]
  - Ejection fraction [Unknown]
  - Left ventricular dysfunction [Unknown]
  - Dizziness [Recovered/Resolved]
  - Nausea [Recovered/Resolved]
  - Headache [Recovered/Resolved]

NARRATIVE: CASE EVENT DATE: 20060621
